FAERS Safety Report 5257181-X (Version None)
Quarter: 2007Q1

REPORT INFORMATION
  Report Type: 
  Country: None (occurrence: None)
  Receive Date: 20070307
  Receipt Date: 20070222
  Transmission Date: 20070707
  Serious: Yes (Disabling)
  Sender: FDA-Public Use
  Company Number: HQWYE617301FEB06

PATIENT
  Sex: Female

DRUGS (9)
  1. ENBREL [Suspect]
     Indication: RHEUMATOID ARTHRITIS
     Dates: start: 20050503, end: 20060201
  2. METHOTREXATE [Concomitant]
     Indication: TRANSFUSION-RELATED IMMUNOMODULATION REACTION
     Dosage: 10 MG, UNSPECIFIED FREQUENCY
  3. NIMESULIDE [Concomitant]
     Dosage: 1 DOSE IN THE MORNING; ONE DOSE IN THE EVENING
  4. ERGOCALCIFEROL [Concomitant]
     Dosage: 2 X 10 GTTAL
  5. FERROUS SULFATE/SERINE [Concomitant]
     Dosage: ONE DOSE IN THE MORNING; ONE DOSE ON THE EVENING
  6. FUROSEMIDE [Concomitant]
     Dosage: ONE DOSE IN THE MORNING
  7. CALCIUM [Concomitant]
     Dosage: 500 MG, UNSPECIFIED FREQUENCY
  8. PREDNISONE [Concomitant]
     Indication: RHEUMATOID ARTHRITIS
     Dosage: UNKNOWN
  9. FOLIC ACID [Concomitant]
     Dosage: ONE DOSE IN THE MORNING

REACTIONS (1)
  - RENAL IMPAIRMENT [None]
